FAERS Safety Report 12341134 (Version 2)
Quarter: 2016Q4

REPORT INFORMATION
  Report Type: Spontaneous
  Country: FR (occurrence: FR)
  Receive Date: 20160506
  Receipt Date: 20161025
  Transmission Date: 20170207
  Serious: Yes (Hospitalization, Other)
  Sender: FDA-Public Use
  Company Number: FR-009507513-1605FRA000801

PATIENT
  Age: 59 Year
  Sex: Male

DRUGS (11)
  1. SPASFON [Concomitant]
     Active Substance: PHLOROGLUCINOL
     Dosage: 2 AMPOULES, 3 TIMES A DAY
     Dates: start: 20160326
  2. TAZOCILLINE [Suspect]
     Active Substance: PIPERACILLIN SODIUM\TAZOBACTAM SODIUM
     Indication: INFECTION
     Dosage: 12 G, QD
     Dates: start: 20160402, end: 20160409
  3. TAZOCILLINE [Suspect]
     Active Substance: PIPERACILLIN SODIUM\TAZOBACTAM SODIUM
     Dosage: 4 G, BID
     Dates: start: 20160327, end: 20160327
  4. TAZOCILLINE [Suspect]
     Active Substance: PIPERACILLIN SODIUM\TAZOBACTAM SODIUM
     Dosage: 8 G, QD
     Dates: start: 20160325, end: 20160326
  5. TAZOCILLINE [Suspect]
     Active Substance: PIPERACILLIN SODIUM\TAZOBACTAM SODIUM
     Dosage: 4 G, BID
     Dates: start: 20160328, end: 20160331
  6. CANCIDAS [Suspect]
     Active Substance: CASPOFUNGIN ACETATE
     Indication: INFECTION
     Dosage: 70 MG, QD
     Route: 065
     Dates: start: 20160322, end: 20160411
  7. ZOPHREN (ONDANSETRON) [Concomitant]
     Active Substance: ONDANSETRON
     Dosage: 4 MG, TID
     Dates: start: 20160326, end: 20160326
  8. VENOFER [Concomitant]
     Active Substance: IRON SUCROSE
     Dosage: UNK
     Dates: start: 20160408, end: 20160409
  9. TAZOCILLINE [Suspect]
     Active Substance: PIPERACILLIN SODIUM\TAZOBACTAM SODIUM
     Dosage: 14 G, QD
     Route: 065
     Dates: start: 20160321, end: 20160324
  10. HALDOL [Concomitant]
     Active Substance: HALOPERIDOL
     Dosage: 10 DROPS, QD
     Dates: start: 20160327, end: 20160328
  11. LOXEN [Concomitant]
     Active Substance: NICARDIPINE HYDROCHLORIDE
     Dosage: 1 MG/ML ACCORDING TO PROTOCOL
     Dates: start: 20160328, end: 20160328

REACTIONS (2)
  - Agranulocytosis [Recovered/Resolved]
  - Toxic skin eruption [Recovered/Resolved]

NARRATIVE: CASE EVENT DATE: 20160402
